FAERS Safety Report 16049593 (Version 1)
Quarter: 2019Q1

REPORT INFORMATION
  Report Type: Report from Study
  Country: MY (occurrence: MY)
  Receive Date: 20190307
  Receipt Date: 20190307
  Transmission Date: 20190418
  Serious: Yes (Death)
  Sender: FDA-Public Use
  Company Number: MY-B.I. PHARMACEUTICALS,INC./RIDGEFIELD-2017-BI-039910

PATIENT
  Age: 34 Year
  Sex: Female

DRUGS (12)
  1. ERLOTINIB [Concomitant]
     Active Substance: ERLOTINIB
     Indication: CHEMOTHERAPY
     Route: 065
     Dates: start: 201301, end: 201303
  2. TAXEL [Concomitant]
     Indication: CHEMOTHERAPY
     Route: 065
     Dates: start: 201211, end: 201212
  3. AVASTIN [Concomitant]
     Active Substance: BEVACIZUMAB
     Dates: start: 201301, end: 201303
  4. IRINOTECAN [Concomitant]
     Active Substance: IRINOTECAN
     Indication: CHEMOTHERAPY
     Route: 065
     Dates: start: 201306, end: 201306
  5. GEFITINIB. [Concomitant]
     Active Substance: GEFITINIB
     Indication: CHEMOTHERAPY
     Route: 065
     Dates: start: 201112, end: 201206
  6. AVASTIN [Concomitant]
     Active Substance: BEVACIZUMAB
     Indication: CHEMOTHERAPY
     Route: 065
     Dates: start: 201211, end: 201212
  7. ALIMTA [Concomitant]
     Active Substance: PEMETREXED DISODIUM
     Indication: CHEMOTHERAPY
     Route: 065
     Dates: start: 201301, end: 201303
  8. CARBAZITAXEL [Concomitant]
     Indication: CHEMOTHERAPY
     Route: 065
     Dates: start: 201304, end: 201305
  9. AFATINIB [Suspect]
     Active Substance: AFATINIB
     Indication: NON-SMALL CELL LUNG CANCER
     Route: 048
     Dates: start: 20121002, end: 20121107
  10. CARBOPLATIN W/GEMCITABINE [Concomitant]
     Active Substance: CARBOPLATIN\GEMCITABINE
     Indication: CHEMOTHERAPY
     Route: 065
     Dates: start: 201207, end: 201208
  11. ERLOTINIB [Concomitant]
     Active Substance: ERLOTINIB
     Dates: start: 201304, end: 201305
  12. UFT [Concomitant]
     Active Substance: TEGAFUR\URACIL
     Indication: CHEMOTHERAPY
     Route: 065
     Dates: start: 201306, end: 201306

REACTIONS (1)
  - Malignant neoplasm progression [Fatal]
